FAERS Safety Report 6181054-1 (Version None)
Quarter: 2009Q2

REPORT INFORMATION
  Report Type: 
  Country: None (occurrence: None)
  Receive Date: 20090506
  Receipt Date: 20090424
  Transmission Date: 20091009
  Serious: Yes (Other)
  Sender: FDA-Public Use
  Company Number: GB-AMGEN-US344535

PATIENT
  Age: 57 Year
  Sex: Male
  Weight: 101 kg

DRUGS (8)
  1. ENBREL [Suspect]
     Indication: DRUG USE FOR UNKNOWN INDICATION
     Dosage: UNKNOWN
     Route: 058
     Dates: start: 20090304, end: 20090304
  2. ACETAMINOPHEN W/ CODEINE [Concomitant]
     Dosage: UNKNOWN
     Route: 065
  3. VENTOLIN [Concomitant]
     Dosage: UNKNOWN
     Route: 065
  4. LOSEC [Concomitant]
     Dosage: UNKNOWN
     Route: 065
  5. PREDNISOLONE [Concomitant]
     Dosage: UNKNOWN
     Route: 065
  6. SERETIDE [Concomitant]
     Dosage: UNKNOWN
     Route: 065
  7. ALENDRONIC ACID [Concomitant]
     Dosage: UNKNOWN
     Route: 065
  8. DICLOFENAC [Concomitant]
     Dosage: UNKNOWN
     Route: 065

REACTIONS (5)
  - CHEST PAIN [None]
  - DYSPNOEA [None]
  - HEADACHE [None]
  - RASH [None]
  - VISION BLURRED [None]
